FAERS Safety Report 5634087-5 (Version None)
Quarter: 2008Q1

REPORT INFORMATION
  Report Type: 
  Country: None (occurrence: None)
  Receive Date: 20080219
  Receipt Date: 20080205
  Transmission Date: 20080703
  Serious: Yes (Hospitalization)
  Sender: FDA-Public Use
  Company Number: 2007JP004062

PATIENT
  Age: 74 Year
  Sex: Male
  Weight: 46 kg

DRUGS (11)
  1. PROGRAF [Suspect]
     Indication: RHEUMATOID ARTHRITIS
     Dosage: 0.5 MG, UID/QD, ORAL, 0.5 MG, BID, ORAL
     Route: 048
     Dates: start: 20070413, end: 20070426
  2. PROGRAF [Suspect]
     Indication: RHEUMATOID ARTHRITIS
     Dosage: 0.5 MG, UID/QD, ORAL, 0.5 MG, BID, ORAL
     Route: 048
     Dates: start: 20070427, end: 20070820
  3. METHOTREXATE [Suspect]
     Indication: RHEUMATOID ARTHRITIS
     Dosage: 4 MG, WEEKLY, ORAL, 6 MG, WEEKLY, ORAL, 8 MG, WEEKLY, ORAL
     Route: 048
     Dates: start: 20060913, end: 20061119
  4. METHOTREXATE [Suspect]
     Indication: RHEUMATOID ARTHRITIS
     Dosage: 4 MG, WEEKLY, ORAL, 6 MG, WEEKLY, ORAL, 8 MG, WEEKLY, ORAL
     Route: 048
     Dates: start: 20061120, end: 20070215
  5. METHOTREXATE [Suspect]
     Indication: RHEUMATOID ARTHRITIS
     Dosage: 4 MG, WEEKLY, ORAL, 6 MG, WEEKLY, ORAL, 8 MG, WEEKLY, ORAL
     Route: 048
     Dates: start: 20070216, end: 20070820
  6. PREDNISOLONE [Suspect]
     Indication: RHEUMATOID ARTHRITIS
     Dosage: 4 MG, UID/QD, ORAL 1 MG, D, ORAL
     Route: 048
     Dates: start: 20060901
  7. FOLIC ACID [Concomitant]
  8. DIGOXIN [Concomitant]
  9. BAYASPIRIN TABLET [Concomitant]
  10. BASEN (VOGLIBOSE) TABLET [Concomitant]
  11. GLIMICRON (GLICLAZIDE) TABLET [Concomitant]

REACTIONS (4)
  - ATRIAL FIBRILLATION [None]
  - EMPHYSEMA [None]
  - PNEUMONIA CRYPTOCOCCAL [None]
  - TYPE 2 DIABETES MELLITUS [None]
